FAERS Safety Report 22255574 (Version 4)
Quarter: 2023Q2

REPORT INFORMATION
  Report Type: Spontaneous
  Country: US (occurrence: US)
  Receive Date: 20230426
  Receipt Date: 20230626
  Transmission Date: 20230722
  Serious: Yes (Other)
  Sender: FDA-Public Use
  Company Number: US-002147023-NVSC2023US092556

PATIENT
  Age: 39 Year
  Sex: Female

DRUGS (3)
  1. COSENTYX [Suspect]
     Active Substance: SECUKINUMAB
     Indication: Psoriasis
     Dosage: 300 MG, QW
     Route: 058
     Dates: start: 20220510, end: 20221230
  2. METFORMIN [Concomitant]
     Active Substance: METFORMIN HYDROCHLORIDE
     Indication: Product used for unknown indication
     Dosage: 1 DOSAGE FORM, QD
     Route: 065
  3. VYVANSE [Concomitant]
     Active Substance: LISDEXAMFETAMINE DIMESYLATE
     Indication: Product used for unknown indication
     Dosage: UNK
     Route: 065

REACTIONS (11)
  - Uveitis [Recovering/Resolving]
  - Hordeolum [Recovering/Resolving]
  - Urinary tract infection [Recovered/Resolved]
  - Vulvovaginal mycotic infection [Recovering/Resolving]
  - Oral pain [Recovering/Resolving]
  - Muscle spasms [Recovered/Resolved]
  - Herpes simplex [Recovering/Resolving]
  - Oral herpes [Recovering/Resolving]
  - Upper respiratory tract infection [Recovering/Resolving]
  - Psoriasis [Recovered/Resolved]
  - Inappropriate schedule of product administration [Recovered/Resolved]

NARRATIVE: CASE EVENT DATE: 20220510
